FAERS Safety Report 6301487-X (Version None)
Quarter: 2009Q3

REPORT INFORMATION
  Report Type: 
  Country: None (occurrence: None)
  Receive Date: 20090807
  Receipt Date: 20090803
  Transmission Date: 20100115
  Serious: Yes (Hospitalization)
  Sender: FDA-Public Use
  Company Number: A0800937A

PATIENT
  Sex: Female
  Weight: 24 kg

DRUGS (2)
  1. SERETIDE [Suspect]
     Route: 065
     Dates: start: 20060101
  2. FLIXOTIDE [Suspect]
     Indication: BRONCHIOLITIS
     Dates: start: 20030101, end: 20050101

REACTIONS (3)
  - BRONCHOSPASM [None]
  - OVERDOSE [None]
  - PNEUMONIA [None]
